FAERS Safety Report 8424336-2 (Version None)
Quarter: 2012Q2

REPORT INFORMATION
  Report Type: 
  Country: None (occurrence: None)
  Receive Date: 20120608
  Receipt Date: 20110902
  Transmission Date: 20120825
  Serious: No
  Sender: FDA-Public Use
  Company Number: US-ASTRAZENECA-2011SE53489

PATIENT
  Sex: Female

DRUGS (22)
  1. LOVAZA [Concomitant]
     Dosage: 1000-5 MG-UNIT, TWICE A DAY
  2. PRILOSEC OTC [Suspect]
     Route: 048
  3. CALCIUM CARB/VIT D3/MINERALS [Concomitant]
     Dosage: 600-400 MG UNIT, TWICE DAILY
     Route: 048
  4. VIBRAMYCIN [Concomitant]
     Route: 048
  5. GARLIC OIL [Concomitant]
  6. NOVOLOG [Concomitant]
     Dosage: 100 UNIT/ML, 20 UNITS SQ BEFORE SUPPER
     Route: 058
  7. AUGMENTIN [Concomitant]
     Dosage: 875-125 AS NEEDED
  8. HUMALOG MIX 50/50 [Concomitant]
     Dosage: 100 UNIT/ML (50-50)
     Route: 058
  9. GLUCOPHAGE XR [Concomitant]
     Route: 048
  10. DELTASONE [Concomitant]
     Indication: DYSPNOEA
     Dosage: HALF TABLET, ONCE DAILY, AS NEEDED
     Route: 048
  11. LISINOPRIL [Suspect]
     Route: 048
  12. NOVOLIN 70/30 [Concomitant]
     Dosage: 100 UNIT/ML (70-30), 36 UNITS SQ EVERY BEDTIME
     Route: 058
  13. SPIRIVA [Concomitant]
     Dosage: 18 MCG, INHALE BY MOUTH AT BEDTIME
     Route: 048
  14. AUGMENTIN [Concomitant]
     Indication: LUNG INFECTION
     Route: 048
  15. LASIX [Concomitant]
  16. ASPIRIN [Concomitant]
     Indication: CARDIOVASCULAR EVENT PROPHYLAXIS
     Route: 048
  17. DILTIAZEM HCL [Concomitant]
     Route: 048
  18. PULMICORT [Suspect]
     Dosage: 1 MG / 2ML, INHALE 1 MG VIA A NEBULIZER TWO TIMES DAILY. TAKES AS NEEDED
     Route: 055
  19. COLACE [Concomitant]
     Route: 048
  20. M.V.I. [Concomitant]
     Dosage: ONE TABLET EVERY DAY
  21. ZOCOR [Concomitant]
     Dosage: HALF TABLET DAILY IN THE EVENING
     Route: 048
  22. POTASSIUM CHLORIDE [Concomitant]

REACTIONS (1)
  - DYSPNOEA [None]
